FAERS Safety Report 24837507 (Version 2)
Quarter: 2025Q1

REPORT INFORMATION
  Report Type: Report from Study
  Country: CN (occurrence: CN)
  Receive Date: 20250113
  Receipt Date: 20250123
  Transmission Date: 20250408
  Serious: Yes (Hospitalization, Other)
  Sender: NOVARTIS
  Company Number: CN-002147023-NVSC2025CN004071

PATIENT
  Sex: Female

DRUGS (1)
  1. KISQALI [Suspect]
     Active Substance: RIBOCICLIB
     Indication: Breast cancer
     Dosage: 600 MG, QD
     Route: 048
     Dates: start: 20241230

REACTIONS (12)
  - White blood cell count decreased [Unknown]
  - Pyrexia [Unknown]
  - Haemoglobin abnormal [Unknown]
  - Red blood cell count abnormal [Unknown]
  - Neutrophil count abnormal [Unknown]
  - Haematocrit abnormal [Unknown]
  - Mean cell volume abnormal [Unknown]
  - Red cell distribution width abnormal [Unknown]
  - Platelet count abnormal [Unknown]
  - Lymphocyte count abnormal [Unknown]
  - Monocyte count abnormal [Unknown]
  - Laboratory test abnormal [Unknown]

NARRATIVE: CASE EVENT DATE: 20250106
